FAERS Safety Report 4579675-2 (Version None)
Quarter: 2005Q1

REPORT INFORMATION
  Report Type: 
  Country: None (occurrence: None)
  Receive Date: 20050210
  Receipt Date: 20050126
  Transmission Date: 20050727
  Serious: Yes (Death)
  Sender: FDA-Public Use
  Company Number: 2004AL000793

PATIENT
  Age: 38 Year
  Sex: Male

DRUGS (2)
  1. VERAPAMIL HYDROCHLORIDE [Suspect]
     Dosage: PO
     Route: 048
  2. VALSARTAN [Suspect]
     Dosage: PO
     Route: 048

REACTIONS (14)
  - AGITATION [None]
  - ATRIOVENTRICULAR BLOCK COMPLETE [None]
  - BRADYCARDIA [None]
  - BRAIN DEATH [None]
  - CARDIAC ARREST [None]
  - COMPLETED SUICIDE [None]
  - CONDUCTION DISORDER [None]
  - HYPERGLYCAEMIA [None]
  - HYPOTENSION [None]
  - INTENTIONAL MISUSE [None]
  - METABOLIC ACIDOSIS [None]
  - NODAL RHYTHM [None]
  - RENAL FAILURE CHRONIC [None]
  - VENTRICULAR ARRHYTHMIA [None]
